FAERS Safety Report 23809886 (Version 1)
Quarter: 2024Q2

REPORT INFORMATION
  Report Type: Spontaneous
  Country: GB (occurrence: GB)
  Receive Date: 20240502
  Receipt Date: 20240502
  Transmission Date: 20240715
  Serious: Yes (Other)
  Sender: FDA-Public Use
  Company Number: None

PATIENT
  Age: 67 Year
  Sex: Male
  Weight: 86 kg

DRUGS (32)
  1. VENLAFAXINE [Suspect]
     Active Substance: VENLAFAXINE HYDROCHLORIDE
     Route: 065
     Dates: start: 20240423
  2. QUETIAPINE [Concomitant]
     Active Substance: QUETIAPINE
     Dosage: TAKE ONE AT NIGHT
     Dates: start: 20231018
  3. SILDENAFIL [Concomitant]
     Active Substance: SILDENAFIL
     Dosage: TAKE ONE AS DIRECTED, DURATION: 114 DAYS
     Dates: start: 20231018, end: 20240209
  4. DIAZEPAM [Concomitant]
     Active Substance: DIAZEPAM
     Dosage: ONE TWICE DAILY WHEN REQUIRED
     Dates: start: 20231018
  5. TICAGRELOR [Concomitant]
     Active Substance: TICAGRELOR
     Dosage: TAKE ONE TABLET TWICE A DAY TO HELP PREVENT HEA...
     Dates: start: 20231018
  6. FERROUS FUMARATE [Concomitant]
     Active Substance: FERROUS FUMARATE
     Dosage: TAKE ONE TABLET ONCE A DAY ON AN EMPTY STOMACH ...
     Dates: start: 20231018
  7. BISOPROLOL [Concomitant]
     Active Substance: BISOPROLOL\BISOPROLOL FUMARATE
     Dosage: TAKE ONE DAILY IN MORNING
     Dates: start: 20231018
  8. APIXABAN [Concomitant]
     Active Substance: APIXABAN
     Dosage: TAKE ONE TABLET TWICE A DAY TO HELP PREVENT BLO...
     Dates: start: 20231018
  9. ALBUTEROL [Concomitant]
     Active Substance: ALBUTEROL
     Dosage: TIME INTERVAL: AS NECESSARY: TWO PUFFS WHEN REQUIRED. (THIS INHALER CONTAINS...
     Dates: start: 20231018
  10. AMITRIPTYLINE HYDROCHLORIDE [Concomitant]
     Active Substance: AMITRIPTYLINE HYDROCHLORIDE
     Dosage: ONE AT NIGHT
     Dates: start: 20240115
  11. METFORMIN [Concomitant]
     Active Substance: METFORMIN HYDROCHLORIDE
     Dosage: TAKE ONE TABLET TWICE DAILY
     Dates: start: 20231018
  12. ISOSORBIDE MONONITRATE [Concomitant]
     Active Substance: ISOSORBIDE MONONITRATE
     Dosage: TAKE HALF A TABLET EACH MORNING AS PER CARDIOLO...
     Dates: start: 20240209
  13. LUFORBEC [Concomitant]
     Indication: Dyspnoea
     Dosage: INHALE TWO PUFFS TWICE A DAY TO PREVENT BREATHL...
     Dates: start: 20231018
  14. EMPAGLIFLOZIN [Concomitant]
     Active Substance: EMPAGLIFLOZIN
     Indication: Diabetes mellitus
     Dosage: TAKE ONE TABLET ONCE A DAY TO HELP CONTROL DIAB...
     Dates: start: 20231122
  15. SENNA [Concomitant]
     Active Substance: SENNA LEAF\SENNOSIDES\SENNOSIDES A AND B
     Indication: Constipation
     Dosage: TAKE TWO TABLETS AT BEDTIME TO HELP RELIEVE CON...
     Dates: start: 20231018
  16. UNSPECIFIED INGREDIENT [Concomitant]
     Active Substance: UNSPECIFIED INGREDIENT
     Dosage: USE AS DIRECTED
     Dates: start: 20231018
  17. UNSPECIFIED INGREDIENT [Concomitant]
     Active Substance: UNSPECIFIED INGREDIENT
     Dosage: USE A NEW NEEDLE FOR EVERY INJECTION
     Dates: start: 20231018
  18. UNSPECIFIED INGREDIENT [Concomitant]
     Active Substance: UNSPECIFIED INGREDIENT
     Dosage: TO BE USED AS DIRECTED
     Dates: start: 20231018
  19. UNSPECIFIED INGREDIENT [Concomitant]
     Active Substance: UNSPECIFIED INGREDIENT
     Dosage: AS DIRECTED
     Dates: start: 20231018
  20. ATORVASTATIN [Concomitant]
     Active Substance: ATORVASTATIN
     Dosage: ONE TO BE TAKEN EACH DAY
     Dates: start: 20231018
  21. TOUJEO [Concomitant]
     Active Substance: INSULIN GLARGINE
     Dosage: 60 UNITS INITIALLY TO BE REVIEWED ONGOING
     Dates: start: 20231018
  22. ZOPICLONE [Concomitant]
     Active Substance: ZOPICLONE
     Dosage: TIME INTERVAL: AS NECESSARY: TAKE ONE AT NIGHT AS REQUIRED. TRY TO MISS 1 TA...
     Dates: start: 20231018
  23. INSULIN ASPART [Concomitant]
     Active Substance: INSULIN ASPART
     Dosage: ADMINISTER BY SUBCUTANEOUS INJECTION AS ADVISED
     Route: 058
     Dates: start: 20231122
  24. MIRTAZAPINE [Concomitant]
     Active Substance: MIRTAZAPINE
     Indication: Depressed mood
     Dosage: TAKE ONE TABLET AT NIGHT TO HELP PREVENT LOW MOOD
     Dates: start: 20231018
  25. CANDESARTAN [Concomitant]
     Active Substance: CANDESARTAN
     Dosage: TAKE ONE ONCE DAILY
     Dates: start: 20231018
  26. AMLODIPINE [Concomitant]
     Active Substance: AMLODIPINE BESYLATE
     Dosage: TAKE ONE TABLET ONCE A DAY
     Dates: start: 20231123
  27. LATANOPROST [Concomitant]
     Active Substance: LATANOPROST
     Dosage: ONE DROP INTO BOTH EYES ONCE DAILY AT NIGHT
     Dates: start: 20231018
  28. FUROSEMIDE [Concomitant]
     Active Substance: FUROSEMIDE
     Dosage: TAKE ONE TABLET EACH MORNING
     Dates: start: 20240109
  29. NITROLINGUAL [Concomitant]
     Active Substance: NITROGLYCERIN
     Dosage: TIME INTERVAL: AS NECESSARY: ONE PUFF AS NEEDED
     Dates: start: 20231018
  30. ACETAMINOPHEN [Concomitant]
     Active Substance: ACETAMINOPHEN
     Dosage: TIME INTERVAL: AS NECESSARY: TAKE ONE OR TWO FOUR TIMES DAILY AS REQUIRED
     Dates: start: 20231018
  31. OMEPRAZOLE [Concomitant]
     Active Substance: OMEPRAZOLE
     Dosage: ONE TO BE TAKEN TWICE A DAY
     Dates: start: 20231018
  32. CALCIUM CARBONATE\SODIUM ALGINATE\SODIUM BICARBONATE [Concomitant]
     Active Substance: CALCIUM CARBONATE\SODIUM ALGINATE\SODIUM BICARBONATE
     Dosage: TAKE 10-20MLS AFTER MEALS AND AT BEDTIME IF REQ...
     Dates: start: 20231018

REACTIONS (6)
  - Headache [Unknown]
  - Dizziness [Recovered/Resolved]
  - Abdominal discomfort [Recovered/Resolved]
  - Illness [Recovered/Resolved]
  - Disorientation [Recovered/Resolved]
  - Dissociation [Unknown]

NARRATIVE: CASE EVENT DATE: 20240423
